FAERS Safety Report 7378112-2 (Version None)
Quarter: 2011Q1

REPORT INFORMATION
  Report Type: 
  Country: None (occurrence: None)
  Receive Date: 20110328
  Receipt Date: 20110323
  Transmission Date: 20110831
  Serious: Yes (Hospitalization)
  Sender: FDA-Public Use
  Company Number: GB-TEVA-273148ISR

PATIENT
  Age: 34 Year
  Sex: Male
  Weight: 109.5 kg

DRUGS (3)
  1. FOLIC ACID [Suspect]
  2. METHOTREXATE [Suspect]
     Dates: start: 20080101
  3. ADALIMUMAB [Suspect]
     Indication: PSORIASIS
     Route: 058
     Dates: start: 20081201

REACTIONS (1)
  - OSTEOMYELITIS [None]
